FAERS Safety Report 13314539 (Version 3)
Quarter: 2019Q1

REPORT INFORMATION
  Report Type: Spontaneous
  Country: US (occurrence: US)
  Receive Date: 20170309
  Receipt Date: 20190315
  Transmission Date: 20190417
  Serious: No
  Sender: FDA-Public Use
  Company Number: US-ACTELION-A-US2017-150919

PATIENT
  Age: 71 Year
  Sex: Female

DRUGS (17)
  1. TRAZODONE [Concomitant]
     Active Substance: TRAZODONE HYDROCHLORIDE
  2. HYDROCODONE [Concomitant]
     Active Substance: HYDROCODONE
  3. LYRICA [Concomitant]
     Active Substance: PREGABALIN
  4. LISINOPRIL. [Concomitant]
     Active Substance: LISINOPRIL
  5. UPTRAVI [Suspect]
     Active Substance: SELEXIPAG
     Dosage: 1000 MCG, BID
     Route: 048
  6. SPIRONOLACTONE. [Concomitant]
     Active Substance: SPIRONOLACTONE
  7. LASIX [Concomitant]
     Active Substance: FUROSEMIDE
  8. ADCIRCA [Concomitant]
     Active Substance: TADALAFIL
  9. UPTRAVI [Suspect]
     Active Substance: SELEXIPAG
     Dosage: 1200 MCG, BID
     Route: 048
  10. AMBRISENTAN [Suspect]
     Active Substance: AMBRISENTAN
     Indication: PRODUCT USED FOR UNKNOWN INDICATION
     Dosage: 10 MG, QD
     Route: 065
     Dates: start: 20130220
  11. POTASSIUM [Concomitant]
     Active Substance: POTASSIUM
  12. UPTRAVI [Suspect]
     Active Substance: SELEXIPAG
     Indication: PRODUCT USED FOR UNKNOWN INDICATION
     Dosage: 1600 MCG, BID
     Route: 048
  13. WARFARIN [Concomitant]
     Active Substance: WARFARIN
  14. FENTANYL. [Concomitant]
     Active Substance: FENTANYL
  15. PROZAC [Concomitant]
     Active Substance: FLUOXETINE HYDROCHLORIDE
  16. DIGOXIN. [Concomitant]
     Active Substance: DIGOXIN
  17. CYMBALTA [Concomitant]
     Active Substance: DULOXETINE HYDROCHLORIDE

REACTIONS (9)
  - Osteoarthritis [Not Recovered/Not Resolved]
  - Upper respiratory tract infection [Not Recovered/Not Resolved]
  - Restlessness [Not Recovered/Not Resolved]
  - Insomnia [Not Recovered/Not Resolved]
  - Heart rate increased [Unknown]
  - Pruritus generalised [Not Recovered/Not Resolved]
  - Depression [Not Recovered/Not Resolved]
  - Sinusitis [Not Recovered/Not Resolved]
  - Fibromyalgia [Not Recovered/Not Resolved]
